FAERS Safety Report 9586117 (Version 1)
Quarter: 2013Q4

REPORT INFORMATION
  Report Type: Spontaneous
  Country: US (occurrence: None)
  Receive Date: 20131002
  Receipt Date: 20131002
  Transmission Date: 20140711
  Serious: Yes (Hospitalization)
  Sender: FDA-Public Use
  Company Number: None

PATIENT
  Age: 59 Year
  Sex: Male
  Weight: 89.5 kg

DRUGS (2)
  1. ASPIRIN [Suspect]
     Indication: PULMONARY HYPERTENSION
     Route: 048
     Dates: start: 20130108, end: 20130919
  2. WARFARIN [Suspect]
     Route: 048
     Dates: start: 20130108, end: 20130919

REACTIONS (4)
  - Gastric haemorrhage [None]
  - Epistaxis [None]
  - Haematemesis [None]
  - Faeces discoloured [None]
